FAERS Safety Report 4764508-1 (Version None)
Quarter: 2005Q3

REPORT INFORMATION
  Report Type: 
  Country: None (occurrence: None)
  Receive Date: 20050909
  Receipt Date: 20050829
  Transmission Date: 20060218
  Serious: Yes (Hospitalization)
  Sender: FDA-Public Use
  Company Number: JP-JNJFOC-20050405850

PATIENT
  Sex: Male
  Weight: 60 kg

DRUGS (24)
  1. REMICADE [Suspect]
     Route: 042
  2. REMICADE [Suspect]
     Route: 042
  3. REMICADE [Suspect]
     Indication: RHEUMATOID ARTHRITIS
     Route: 042
  4. RHEUMATREX [Suspect]
     Route: 048
  5. RHEUMATREX [Suspect]
     Route: 048
  6. RHEUMATREX [Suspect]
     Route: 048
  7. RHEUMATREX [Suspect]
     Route: 048
  8. RHEUMATREX [Suspect]
     Indication: RHEUMATOID ARTHRITIS
     Route: 048
  9. PREDNISOLONE [Suspect]
     Route: 048
  10. PREDNISOLONE [Suspect]
     Route: 048
  11. PREDNISOLONE [Suspect]
     Indication: RHEUMATOID ARTHRITIS
     Route: 048
  12. LOXONIN [Concomitant]
     Indication: RHEUMATOID ARTHRITIS
     Route: 048
  13. EFONIDIPINE HYDROCHLORIDE [Concomitant]
     Indication: HYPERTENSION
     Route: 048
  14. BLOPRESS [Concomitant]
     Indication: HYPERTENSION
     Route: 048
  15. TAKEPRON [Concomitant]
     Route: 048
  16. BENET [Concomitant]
     Indication: OSTEOPOROSIS
     Route: 048
  17. BISOLVON [Concomitant]
     Indication: BRONCHITIS
     Route: 048
  18. ADONA [Concomitant]
     Route: 048
  19. CINAL [Concomitant]
     Route: 048
  20. CINAL [Concomitant]
     Route: 048
  21. CARNACULIN [Concomitant]
     Dosage: 75 UT
     Route: 048
  22. BENAMBAX [Concomitant]
     Route: 055
  23. BENAMBAX [Concomitant]
     Indication: PROPHYLAXIS
     Route: 055
  24. POLARAMINE [Concomitant]
     Indication: DRUG USE FOR UNKNOWN INDICATION
     Route: 042

REACTIONS (1)
  - PNEUMOCYSTIS JIROVECI PNEUMONIA [None]
